FAERS Safety Report 25676714 (Version 1)
Quarter: 2025Q3

REPORT INFORMATION
  Report Type: Spontaneous
  Country: US (occurrence: US)
  Receive Date: 20250813
  Receipt Date: 20250813
  Transmission Date: 20251021
  Serious: Yes (Hospitalization, Other)
  Sender: ORGANON
  Company Number: US-MLMSERVICE-20250725-PI592068-00080-1

PATIENT
  Age: 48 Year
  Sex: Male

DRUGS (4)
  1. CARBIDOPA\LEVODOPA [Suspect]
     Active Substance: CARBIDOPA\LEVODOPA
     Indication: Parkinson^s disease
     Dosage: 1 DOSAGE FORM, TID
     Route: 048
  2. CARBIDOPA\LEVODOPA [Suspect]
     Active Substance: CARBIDOPA\LEVODOPA
     Dosage: 1 DOSAGE FORM, Q8H
     Route: 048
  3. CARBIDOPA\LEVODOPA [Suspect]
     Active Substance: CARBIDOPA\LEVODOPA
     Dosage: 1 DOSAGE FORM, Q6H
     Route: 048
  4. FENTANYL [Concomitant]
     Active Substance: FENTANYL

REACTIONS (5)
  - Hallucination, visual [Unknown]
  - Dopamine dysregulation syndrome [Unknown]
  - Drug ineffective [Unknown]
  - Intentional product misuse [Unknown]
  - Overdose [Unknown]
